FAERS Safety Report 9626767 (Version 1)
Quarter: 2013Q4

REPORT INFORMATION
  Report Type: Spontaneous
  Country: US (occurrence: US)
  Receive Date: 20131016
  Receipt Date: 20131016
  Transmission Date: 20140711
  Serious: Yes (Hospitalization)
  Sender: FDA-Public Use
  Company Number: US-GLAXOSMITHKLINE-A1045488A

PATIENT
  Age: 73 Year
  Sex: Male

DRUGS (1)
  1. ADVAIR DISKUS [Suspect]
     Indication: RESPIRATORY DISORDER
     Route: 065
     Dates: start: 20130717

REACTIONS (1)
  - Myocardial infarction [Unknown]
